FAERS Safety Report 6495224-6 (Version None)
Quarter: 2009Q4

REPORT INFORMATION
  Report Type: 
  Country: None (occurrence: None)
  Receive Date: 20091214
  Receipt Date: 20090515
  Transmission Date: 20100525
  Serious: No
  Sender: FDA-Public Use
  Company Number: US-BRISTOL-MYERS SQUIBB COMPANY-14625271

PATIENT
  Age: 13 Year
  Sex: Male
  Weight: 57 kg

DRUGS (2)
  1. ABILIFY [Suspect]
     Indication: BIPOLAR DISORDER
     Dates: start: 20070101
  2. STRATTERA [Concomitant]

REACTIONS (2)
  - DYSKINESIA [None]
  - WEIGHT INCREASED [None]
